FAERS Safety Report 15941664 (Version 1)
Quarter: 2019Q1

REPORT INFORMATION
  Report Type: Spontaneous
  Country: US (occurrence: US)
  Receive Date: 20190208
  Receipt Date: 20190208
  Transmission Date: 20190417
  Serious: Yes (Other)
  Sender: FDA-Public Use
  Company Number: US-BRISTOL-MYERS SQUIBB COMPANY-BMS-2019-012067

PATIENT
  Sex: Female

DRUGS (1)
  1. ELIQUIS [Suspect]
     Active Substance: APIXABAN
     Indication: PULMONARY EMBOLISM
     Dosage: 5 MG, BID
     Route: 048
     Dates: start: 201810

REACTIONS (6)
  - Cough [Unknown]
  - Memory impairment [Unknown]
  - Wound infection [Unknown]
  - Wound haemorrhage [Unknown]
  - Faeces discoloured [Unknown]
  - Constipation [Unknown]
